FAERS Safety Report 20625721 (Version 1)
Quarter: 2022Q1

REPORT INFORMATION
  Report Type: Spontaneous
  Country: US (occurrence: None)
  Receive Date: 20220323
  Receipt Date: 20220323
  Transmission Date: 20220423
  Serious: No
  Sender: FDA-Public Use
  Company Number: US-ROCHE-2877714

PATIENT
  Age: 72 Year
  Sex: Male
  Weight: 89.892 kg

DRUGS (11)
  1. ERIVEDGE [Suspect]
     Active Substance: VISMODEGIB
     Indication: Basal cell carcinoma
     Route: 048
     Dates: start: 2021, end: 20210705
  2. LISINOPRIL [Concomitant]
     Active Substance: LISINOPRIL
     Indication: Hypertension
     Route: 048
     Dates: start: 2013
  3. SOTALOL [Concomitant]
     Active Substance: SOTALOL
     Indication: Heart rate decreased
     Route: 048
     Dates: start: 2013
  4. ASPIRIN [Concomitant]
     Active Substance: ASPIRIN
     Route: 048
  5. PANTOPRAZOLE [Concomitant]
     Active Substance: PANTOPRAZOLE
     Indication: Gastrooesophageal reflux disease
     Route: 048
     Dates: start: 2013
  6. ALLOPURINOL [Concomitant]
     Active Substance: ALLOPURINOL
     Indication: Gout
     Route: 048
     Dates: start: 2010
  7. ROSUVASTATIN [Concomitant]
     Active Substance: ROSUVASTATIN
     Indication: Blood cholesterol
     Route: 048
     Dates: start: 2019
  8. METAMUCIL [Concomitant]
     Active Substance: PLANTAGO SEED
     Route: 048
     Dates: start: 2010
  9. COENZYME Q10 [Concomitant]
     Active Substance: DIETARY SUPPLEMENT\UBIDECARENONE
     Route: 048
     Dates: start: 2019
  10. FISH OIL [Concomitant]
     Active Substance: FISH OIL
     Route: 048
     Dates: start: 2010
  11. VITAMINS [Concomitant]
     Active Substance: VITAMINS

REACTIONS (2)
  - Weight decreased [Not Recovered/Not Resolved]
  - Taste disorder [Not Recovered/Not Resolved]

NARRATIVE: CASE EVENT DATE: 20210601
